FAERS Safety Report 6302241-5 (Version None)
Quarter: 2009Q3

REPORT INFORMATION
  Report Type: 
  Country: None (occurrence: None)
  Receive Date: 20090810
  Receipt Date: 20090728
  Transmission Date: 20100115
  Serious: Yes (Other)
  Sender: FDA-Public Use
  Company Number: DE-RANBAXY-2009RR-26102

PATIENT
  Age: 50 Year
  Sex: Male

DRUGS (3)
  1. SIMVASTATIN [Suspect]
     Dosage: 80 MG, QD
  2. CLARITHROMYCIN [Suspect]
     Indication: PNEUMONIA
     Dosage: 500 MG, BID
     Route: 048
  3. FLUCONAZOLE [Suspect]
     Indication: PNEUMONIA
     Dosage: 200 MG, QD
     Route: 042

REACTIONS (3)
  - DRUG INTERACTION [None]
  - MYOPATHY [None]
  - PARAPARESIS [None]
